FAERS Safety Report 8166900-4 (Version None)
Quarter: 2012Q1

REPORT INFORMATION
  Report Type: 
  Country: None (occurrence: None)
  Receive Date: 20120227
  Receipt Date: 20120217
  Transmission Date: 20120608
  Serious: Yes (Hospitalization)
  Sender: FDA-Public Use
  Company Number: US-JNJFOC-20120210998

PATIENT
  Sex: Female

DRUGS (2)
  1. INVEGA SUSTENNA [Suspect]
     Indication: PRODUCT USED FOR UNKNOWN INDICATION
     Route: 030
     Dates: start: 20120101, end: 20120101
  2. LITHIUM CARBONATE [Concomitant]
     Route: 065

REACTIONS (2)
  - PRODUCT QUALITY ISSUE [None]
  - PSYCHOTIC DISORDER [None]
